FAERS Safety Report 26099061 (Version 1)
Quarter: 2025Q4

REPORT INFORMATION
  Report Type: Report from Study
  Country: EU (occurrence: EU)
  Receive Date: 20251128
  Receipt Date: 20251128
  Transmission Date: 20260117
  Serious: Yes (Life-Threatening, Hospitalization, Other)
  Sender: BAXTER
  Company Number: EU-BAXTER-2025BAX022404

PATIENT
  Age: 60 Year
  Sex: Female
  Weight: 72 kg

DRUGS (22)
  1. DOXORUBICIN [Suspect]
     Active Substance: DOXORUBICIN
     Indication: Non-Hodgkin^s lymphoma
     Dosage: 90 MG, EVERY 3 WEEKS
     Route: 042
     Dates: start: 20250811, end: 20250923
  2. DOXORUBICIN [Suspect]
     Active Substance: DOXORUBICIN
     Dosage: 88 MG, EVERY 3 WEEKS
     Route: 042
     Dates: start: 20251027
  3. CYCLOPHOSPHAMIDE [Suspect]
     Active Substance: CYCLOPHOSPHAMIDE
     Indication: Non-Hodgkin^s lymphoma
     Dosage: 1357 MG, EVERY 3 WEEKS
     Route: 042
     Dates: start: 20250811, end: 20250902
  4. CYCLOPHOSPHAMIDE [Suspect]
     Active Substance: CYCLOPHOSPHAMIDE
     Dosage: 1350 MG, EVERY 3 WEEKS
     Route: 042
     Dates: start: 20250923, end: 20250923
  5. CYCLOPHOSPHAMIDE [Suspect]
     Active Substance: CYCLOPHOSPHAMIDE
     Dosage: 1327 MG, EVERY 3 WEEKS
     Route: 042
     Dates: start: 20251027
  6. EPCORITAMAB [Suspect]
     Active Substance: EPCORITAMAB
     Indication: Non-Hodgkin^s lymphoma
     Dosage: 48 MG C1 (STEP-UP), CYCLES 2-3 (WEEKLY), AND C4-24 (EVERY 4 WEEKS) PER PROTOCOL, EVERY 1 WEEKS
     Route: 058
     Dates: start: 20250811, end: 20250923
  7. EPCORITAMAB [Suspect]
     Active Substance: EPCORITAMAB
     Dosage: 48 MG C1 (STEP-UP), CYCLES 2-3 (WEEKLY) AND C4-24 (EVERY 4 WEEKS) PER PROTOCOL, EVERY 1 WEEKS
     Route: 058
     Dates: start: 20251013
  8. IBRUTINIB [Suspect]
     Active Substance: IBRUTINIB
     Indication: Non-Hodgkin^s lymphoma
     Dosage: DRUG NOT ADMINISTERED
     Route: 065
  9. VENETOCLAX [Suspect]
     Active Substance: VENETOCLAX
     Indication: Non-Hodgkin^s lymphoma
     Dosage: DRUG NOT ADMINISTERED
     Route: 065
  10. PREDNISONE [Suspect]
     Active Substance: PREDNISONE
     Indication: Non-Hodgkin^s lymphoma
     Dosage: 100 MG D1-5, C1-6, EVERY 1 DAYS
     Route: 048
     Dates: start: 20250811, end: 20250927
  11. PREDNISONE [Suspect]
     Active Substance: PREDNISONE
     Dosage: 100 MG D1-5, C1-6, EVERY 1 DAYS
     Route: 048
     Dates: start: 20251027
  12. POLATUZUMAB VEDOTIN [Suspect]
     Active Substance: POLATUZUMAB VEDOTIN
     Indication: Non-Hodgkin^s lymphoma
     Dosage: 133 MG, EVERY 3 WEEKS
     Route: 042
     Dates: start: 20250811, end: 20250902
  13. POLATUZUMAB VEDOTIN [Suspect]
     Active Substance: POLATUZUMAB VEDOTIN
     Dosage: 131 MG, EVERY 3 WEEKS
     Route: 042
     Dates: start: 20250923, end: 20250923
  14. POLATUZUMAB VEDOTIN [Suspect]
     Active Substance: POLATUZUMAB VEDOTIN
     Dosage: 127 MG, EVERY 3 WEEKS
     Route: 042
     Dates: start: 20251027
  15. RITUXIMAB [Suspect]
     Active Substance: RITUXIMAB
     Indication: Non-Hodgkin^s lymphoma
     Dosage: 679 MG, EVERY 3 WEEKS
     Route: 042
     Dates: start: 20250811, end: 20250902
  16. RITUXIMAB [Suspect]
     Active Substance: RITUXIMAB
     Dosage: 675 MG, EVERY 3 WEEKS
     Route: 042
     Dates: start: 20250923, end: 20250923
  17. RITUXIMAB [Suspect]
     Active Substance: RITUXIMAB
     Dosage: 664 MG, EVERY 3 WEEKS
     Route: 042
     Dates: start: 20251027
  18. ACYCLOVIR [Concomitant]
     Active Substance: ACYCLOVIR
     Indication: Antiviral prophylaxis
     Dosage: 400 MG, CONTINUOUS
     Route: 065
     Dates: start: 20250729
  19. SULFAMETHOXAZOLE\TRIMETHOPRIM [Concomitant]
     Active Substance: SULFAMETHOXAZOLE\TRIMETHOPRIM
     Indication: Antifungal prophylaxis
     Dosage: 400/80 MG, 2/DAYS
     Route: 065
     Dates: start: 20250729
  20. FOLIC ACID [Concomitant]
     Active Substance: FOLIC ACID
     Indication: Antifungal prophylaxis
     Dosage: 3 MG, EVERY 1 DAYS
     Route: 065
     Dates: start: 20250730
  21. PANTOPRAZOLE SODIUM [Concomitant]
     Active Substance: PANTOPRAZOLE SODIUM
     Indication: Prophylaxis against gastrointestinal ulcer
     Dosage: 40 MG, CONTINUOUS
     Route: 065
     Dates: start: 20250629
  22. FEBUXOSTAT [Concomitant]
     Active Substance: FEBUXOSTAT
     Indication: Prophylaxis
     Dosage: 120 MG, CONTINUOUS
     Route: 065
     Dates: start: 20250729

REACTIONS (3)
  - Infection [Recovered/Resolved]
  - Febrile neutropenia [Recovered/Resolved]
  - Neutropenia [Recovered/Resolved]

NARRATIVE: CASE EVENT DATE: 20250930
